FAERS Safety Report 24894585 (Version 1)
Quarter: 2025Q1

REPORT INFORMATION
  Report Type: Spontaneous
  Country: CA (occurrence: CA)
  Receive Date: 20250128
  Receipt Date: 20250128
  Transmission Date: 20250409
  Serious: Yes (Hospitalization)
  Sender: ROCHE
  Company Number: CA-002147023-NVSC2025CA010674

PATIENT
  Age: 69 Year
  Sex: Male

DRUGS (1)
  1. OMALIZUMAB [Suspect]
     Active Substance: OMALIZUMAB
     Indication: Asthma
     Dosage: 300 MG, Q4W
     Route: 065

REACTIONS (7)
  - Asthma [Unknown]
  - Fall [Unknown]
  - Malaise [Unknown]
  - Pulmonary embolism [Unknown]
  - Rib fracture [Unknown]
  - Syncope [Unknown]
  - White blood cell count increased [Unknown]
